FAERS Safety Report 5028407-2 (Version None)
Quarter: 2006Q2

REPORT INFORMATION
  Report Type: 
  Country: None (occurrence: None)
  Receive Date: 20060617
  Receipt Date: 20060606
  Transmission Date: 20061013
  Serious: Yes (Other)
  Sender: FDA-Public Use
  Company Number: PHBS2006JP08671

PATIENT
  Age: 77 Year
  Sex: Male

DRUGS (1)
  1. LOCHOL [Suspect]
     Route: 048

REACTIONS (3)
  - ANTINUCLEAR ANTIBODY INCREASED [None]
  - BLOOD SODIUM DECREASED [None]
  - INAPPROPRIATE ANTIDIURETIC HORMONE SECRETION [None]
